FAERS Safety Report 25094197 (Version 1)
Quarter: 2025Q1

REPORT INFORMATION
  Report Type: Spontaneous
  Country: AT (occurrence: AT)
  Receive Date: 20250319
  Receipt Date: 20250319
  Transmission Date: 20250408
  Serious: Yes (Hospitalization, Other)
  Sender: NOVARTIS
  Company Number: AT-002147023-NVSC2025AT043219

PATIENT
  Sex: Female

DRUGS (7)
  1. CYCLOSPORINE [Suspect]
     Active Substance: CYCLOSPORINE
     Indication: Chronic graft versus host disease
     Route: 048
     Dates: start: 202011, end: 202101
  2. CYCLOSPORINE [Suspect]
     Active Substance: CYCLOSPORINE
     Indication: Chronic graft versus host disease oral
     Route: 048
     Dates: start: 202102, end: 202409
  3. CYCLOSPORINE [Suspect]
     Active Substance: CYCLOSPORINE
     Indication: Chronic graft versus host disease in skin
     Route: 050
     Dates: start: 202201, end: 202409
  4. DOLUTEGRAVIR [Concomitant]
     Active Substance: DOLUTEGRAVIR
     Indication: HIV infection
     Route: 065
  5. ABACAVIR [Concomitant]
     Active Substance: ABACAVIR
     Indication: HIV infection
     Route: 065
  6. LAMIVUDINE [Concomitant]
     Active Substance: LAMIVUDINE
     Indication: HIV infection
     Route: 065
  7. RUXOLITINIB [Concomitant]
     Active Substance: RUXOLITINIB
     Indication: Product used for unknown indication
     Dosage: 10 MG, BID
     Route: 065
     Dates: start: 202410

REACTIONS (13)
  - Pneumococcal sepsis [Unknown]
  - Chronic graft versus host disease oral [Unknown]
  - Chronic graft versus host disease in liver [Unknown]
  - Scleroderma-like reaction [Recovering/Resolving]
  - Scleroderma [Recovering/Resolving]
  - Dry eye [Recovering/Resolving]
  - Disease progression [Unknown]
  - Infection [Unknown]
  - Rash maculo-papular [Unknown]
  - Infection [Unknown]
  - Dyspnoea [Recovering/Resolving]
  - Dysphagia [Recovered/Resolved]
  - Weight decreased [Unknown]

NARRATIVE: CASE EVENT DATE: 20231101
